FAERS Safety Report 17186216 (Version 6)
Quarter: 2024Q4

REPORT INFORMATION
  Report Type: Spontaneous
  Country: US (occurrence: US)
  Receive Date: 20191220
  Receipt Date: 20241218
  Transmission Date: 20250115
  Serious: No
  Sender: VERTEX
  Company Number: US-VERTEX PHARMACEUTICALS-2019-013284

PATIENT
  Age: 48 Year
  Sex: Female
  Weight: 62 kg

DRUGS (20)
  1. TRIKAFTA [Suspect]
     Active Substance: ELEXACAFTOR\IVACAFTOR\TEZACAFTOR
     Indication: Cystic fibrosis
     Dosage: 2 TABLETS OF 100MG ELEXACAFTOR/ 50 MG TEZACAFTOR/ 75 MG IVACAFTOR AM; 1 TABLET 150 MG IVACAFTOR PM
     Route: 048
     Dates: start: 20191204
  2. TRIKAFTA [Suspect]
     Active Substance: ELEXACAFTOR\IVACAFTOR\TEZACAFTOR
     Dosage: ONE ORANGE PILL EVERY MORNING AND ONE BLUE PILL IN THE EVENING
     Route: 048
     Dates: start: 2020, end: 20210513
  3. ALBUTEROL [Concomitant]
     Active Substance: ALBUTEROL
     Dosage: UNK
     Route: 055
  4. LANTUS [Concomitant]
     Active Substance: INSULIN GLARGINE
     Dosage: UNK
  5. VITAMIN D [Concomitant]
     Active Substance: VITAMIN D NOS
     Dosage: UNK
  6. CITALOPRAM [Concomitant]
     Active Substance: CITALOPRAM
     Dosage: UNK
  7. FENTANYL [Concomitant]
     Active Substance: FENTANYL
     Dosage: UNK
  8. HUMALOG [Concomitant]
     Active Substance: INSULIN LISPRO
  9. PANCREASE MT [Concomitant]
     Active Substance: PANCRELIPASE
     Dosage: UNK
  10. LORAZEPAM [Concomitant]
     Active Substance: LORAZEPAM
     Dosage: UNK
  11. AMITIZA [Concomitant]
     Active Substance: LUBIPROSTONE
     Dosage: UNK
  12. MORPHINE SULFATE [Concomitant]
     Active Substance: MORPHINE SULFATE
     Dosage: UNK
  13. SPIRONOLACTONE [Concomitant]
     Active Substance: SPIRONOLACTONE
     Dosage: 100 MG
  14. SPIRIVA [Concomitant]
     Active Substance: TIOTROPIUM BROMIDE MONOHYDRATE
     Dosage: UNK
  15. URSODIOL [Concomitant]
     Active Substance: URSODIOL
     Dosage: UNK
  16. DOXYCYCLINE [Concomitant]
     Active Substance: DOXYCYCLINE
  17. IBUPROFEN [Concomitant]
     Active Substance: IBUPROFEN
  18. TYLENOL [Concomitant]
     Active Substance: ACETAMINOPHEN
  19. PREDNISONE [Concomitant]
     Active Substance: PREDNISONE
  20. COLCHICINE [Concomitant]
     Active Substance: COLCHICINE

REACTIONS (25)
  - Syncope [Unknown]
  - Fatigue [Unknown]
  - Brain fog [Unknown]
  - Balance disorder [Unknown]
  - Pain [Unknown]
  - Gastritis [Unknown]
  - Postmenopausal haemorrhage [Unknown]
  - Breast pain [Unknown]
  - Anxiety [Unknown]
  - Somnolence [Unknown]
  - Increased appetite [Not Recovered/Not Resolved]
  - Constipation [Unknown]
  - Xanthelasma [Not Recovered/Not Resolved]
  - Blood triglycerides increased [Unknown]
  - Abdominal distension [Unknown]
  - Pruritus [Unknown]
  - Headache [Unknown]
  - Abdominal pain [Unknown]
  - Weight increased [Not Recovered/Not Resolved]
  - Stress [Not Recovered/Not Resolved]
  - Oedema [Unknown]
  - Mucous stools [Unknown]
  - Depression [Unknown]
  - Anorectal discomfort [Unknown]
  - Pelvic pain [Unknown]

NARRATIVE: CASE EVENT DATE: 20191209
